FAERS Safety Report 6821653-4 (Version None)
Quarter: 2010Q3

REPORT INFORMATION
  Report Type: 
  Country: None (occurrence: None)
  Receive Date: 20100707
  Receipt Date: 20090509
  Transmission Date: 20110219
  Serious: No
  Sender: FDA-Public Use
  Company Number: US-PFIZER INC-2009196459

PATIENT
  Sex: Female
  Weight: 63.492 kg

DRUGS (2)
  1. ZOLOFT [Suspect]
     Indication: ANXIETY
     Dosage: 50 MG, 1X/DAY
     Route: 048
     Dates: start: 20081201, end: 20090301
  2. ZOLOFT [Suspect]
     Indication: DEPRESSION

REACTIONS (2)
  - ANXIETY [None]
  - DEPRESSION [None]
